FAERS Safety Report 12157694 (Version 1)
Quarter: 2016Q1

REPORT INFORMATION
  Report Type: Spontaneous
  Country: US (occurrence: US)
  Receive Date: 20160308
  Receipt Date: 20160308
  Transmission Date: 20160526
  Serious: Yes (Other)
  Sender: FDA-Public Use
  Company Number: US-CIPLA LTD.-2016US01912

PATIENT

DRUGS (6)
  1. PARITAPREVIR [Suspect]
     Active Substance: PARITAPREVIR
     Dosage: 150 MG, QD, 30 MIN AFTER BREAKFAST, DAYS 3-18
     Route: 048
  2. OMBITASVIR [Suspect]
     Active Substance: OMBITASVIR
     Dosage: 25 MG, QD, 30 MIN AFTER BREAKFAST, DAYS 3-18
     Route: 048
  3. RITONAVIR. [Suspect]
     Active Substance: RITONAVIR
     Dosage: 100 MG, QD, 30 MIN AFTER BREAKFAST, DAYS 3-18
     Route: 048
  4. HYDROCODONE BITARTRATE. [Suspect]
     Active Substance: HYDROCODONE BITARTRATE
     Dosage: 5 MG, QD, 30 MIN AFTER BREAKFAST, DAYS 1, 17 AND 18
     Route: 048
  5. ACETAMINOPHEN. [Suspect]
     Active Substance: ACETAMINOPHEN
     Dosage: 300 MG, QD, 30 MIN AFTER BREAKFAST, DAYS 1, 17 AND 18
     Route: 048
  6. DASABUVIR [Suspect]
     Active Substance: DASABUVIR
     Dosage: 250 MG, BID, 30 MIN AFTER BREAKFAST, DAYS 3-18
     Route: 048

REACTIONS (2)
  - Abortion induced [Unknown]
  - Exposure during pregnancy [Unknown]
